FAERS Safety Report 9129879 (Version 1)
Quarter: 2013Q1

REPORT INFORMATION
  Report Type: Spontaneous
  Country: CH (occurrence: CH)
  Receive Date: 20130228
  Receipt Date: 20130228
  Transmission Date: 20140127
  Serious: Yes (Life-Threatening, Hospitalization)
  Sender: FDA-Public Use
  Company Number: CH-PFIZER INC-2013070729

PATIENT
  Age: 64 Year
  Sex: Male

DRUGS (16)
  1. SORTIS [Suspect]
     Dosage: 20 MG, 1X/DAY
     Dates: start: 20120914, end: 20121005
  2. TRYPTIZOL [Suspect]
     Indication: DEPRESSION
     Dosage: 25 MG, 1X/DAY
     Dates: start: 20120914, end: 20121005
  3. ARIXTRA [Concomitant]
     Dosage: 2.5 MG, 1X/DAY
     Route: 058
  4. INSULATARD HM [Concomitant]
     Route: 058
  5. GABAPENTIN [Concomitant]
     Dosage: 400 MG, 3X/DAY
     Route: 048
  6. PALLADON [Concomitant]
     Dosage: 40 MG, 3X/DAY (EVERY 8 HOURS)
     Route: 048
  7. MOVICOL [Concomitant]
     Dosage: 1 DF, 3X/DAY
  8. NOOTROPIL [Concomitant]
     Dosage: 1600 MG, 3X/DAY
  9. PREDNISONE [Concomitant]
     Dosage: 40 MG, 1X/DAY
     Route: 048
  10. ZANTIC [Concomitant]
     Dosage: 150 MG, 2X/DAY
  11. TORASEMIDE [Concomitant]
     Dosage: 20 MG, 1X/DAY
     Route: 048
  12. CALCIMAGON-D3 [Concomitant]
     Dosage: 500 MG, 2X/DAY
     Route: 048
  13. DOSPIR [Concomitant]
     Dosage: 1 DF, 3X/DAY
     Route: 050
  14. SPIRIVA [Concomitant]
     Dosage: 18 UG, 1X/DAY
     Route: 050
  15. SINECOD [Concomitant]
     Dosage: 15 MG, AS NEEDED
     Route: 048
  16. MYDOCALM ^CHOAY LABS.^ [Concomitant]
     Dosage: 150 MG, AS NEEDED
     Route: 048

REACTIONS (1)
  - Interstitial lung disease [Recovering/Resolving]
